FAERS Safety Report 10866197 (Version 1)
Quarter: 2015Q1

REPORT INFORMATION
  Report Type: Spontaneous
  Country: DE (occurrence: None)
  Receive Date: 20150219
  Receipt Date: 20150219
  Transmission Date: 20150721
  Serious: Yes (Congenital Anomaly)
  Sender: FDA-Public Use
  Company Number: IPC201502-000084

PATIENT

DRUGS (11)
  1. MOXONIDINE [Concomitant]
     Active Substance: MOXONIDINE
  2. ALLOPURINOL (ALLOPURINOL) (ALLOPURINOL) [Suspect]
     Active Substance: ALLOPURINOL
     Indication: HAEMOLYTIC URAEMIC SYNDROME
     Dosage: PER DAY
  3. METOPROLOL [Concomitant]
     Active Substance: METOPROLOL
  4. FUROSEMIDE. [Concomitant]
     Active Substance: FUROSEMIDE
  5. COLECALCIFEROL [Concomitant]
     Active Substance: CHOLECALCIFEROL
  6. ALPHA-METHYLDOPA [Concomitant]
     Active Substance: METHYLDOPA
  7. DARBEPOETIN ALFA [Concomitant]
     Active Substance: DARBEPOETIN ALFA
  8. DANAPAROID [Concomitant]
     Active Substance: DANAPAROID
  9. ALFACALCIDOL [Concomitant]
     Active Substance: ALFACALCIDOL
  10. CLONIDINE. [Concomitant]
     Active Substance: CLONIDINE
  11. ENOXAPARINE [Concomitant]
     Active Substance: ENOXAPARIN

REACTIONS (4)
  - Patent ductus arteriosus [None]
  - Foetal exposure during pregnancy [None]
  - Atrial septal defect [None]
  - Umbilical hernia [None]
